FAERS Safety Report 9757906 (Version 1)
Quarter: 2013Q4

REPORT INFORMATION
  Report Type: Other
  Country: GB (occurrence: GB)
  Receive Date: 20131216
  Receipt Date: 20131216
  Transmission Date: 20140711
  Serious: Yes (Other)
  Sender: FDA-Public Use
  Company Number: GB-TARO PHARMACEUTICALS U.S.A., INC-2013SUN05195

PATIENT
  Age: 68 Year
  Sex: Female

DRUGS (5)
  1. WARFARIN [Suspect]
     Indication: DEEP VEIN THROMBOSIS
     Dosage: 4 MG, OD
     Route: 048
     Dates: start: 20130819
  2. CO-DYDRAMOL [Concomitant]
  3. LEVOTHYROXINE [Concomitant]
  4. NAPROXEN [Concomitant]
  5. VENTOLIN [Concomitant]

REACTIONS (2)
  - Chest pain [Not Recovered/Not Resolved]
  - Facial pain [Not Recovered/Not Resolved]
